FAERS Safety Report 16071617 (Version 1)
Quarter: 2019Q1

REPORT INFORMATION
  Report Type: Spontaneous
  Country: US (occurrence: US)
  Receive Date: 20190314
  Receipt Date: 20190314
  Transmission Date: 20190418
  Serious: No
  Sender: FDA-Public Use
  Company Number: US-BAYER-2019-051573

PATIENT
  Age: 48 Year
  Sex: Male

DRUGS (1)
  1. ULTRAVIST [Suspect]
     Active Substance: IOPROMIDE
     Indication: COMPUTERISED TOMOGRAM
     Dosage: 100 ML, ONCE (300MG (100ML) ONE TIME DOSE)
     Route: 042
     Dates: start: 20190222, end: 20190222

REACTIONS (1)
  - Urticaria [None]

NARRATIVE: CASE EVENT DATE: 20190222
